FAERS Safety Report 11353328 (Version 1)
Quarter: 2015Q3

REPORT INFORMATION
  Report Type: Spontaneous
  Country: JP (occurrence: JP)
  Receive Date: 20150807
  Receipt Date: 20150807
  Transmission Date: 20151125
  Serious: Yes (Other)
  Sender: FDA-Public Use
  Company Number: JP-GLAXOSMITHKLINE-JP2015JPN104573

PATIENT
  Age: 62 Year
  Sex: Male

DRUGS (4)
  1. ZEFIX [Suspect]
     Active Substance: LAMIVUDINE
     Indication: CHRONIC HEPATITIS B
     Dosage: 100 MG, QD
     Route: 048
  2. HEPSERA [Suspect]
     Active Substance: ADEFOVIR DIPIVOXIL
     Indication: CHRONIC HEPATITIS B
     Dosage: 10 MG, QD
     Route: 048
  3. HEPSERA [Suspect]
     Active Substance: ADEFOVIR DIPIVOXIL
     Dosage: 10 MG, QOD
     Route: 048
  4. ZEFIX [Suspect]
     Active Substance: LAMIVUDINE
     Dosage: 100 MG, QOD
     Route: 048

REACTIONS (1)
  - Renal impairment [Recovered/Resolved]
